FAERS Safety Report 9624212 (Version 4)
Quarter: 2013Q4

REPORT INFORMATION
  Report Type: Report from Study
  Country: US (occurrence: US)
  Receive Date: 20131015
  Receipt Date: 20131120
  Transmission Date: 20140711
  Serious: Yes (Death, Hospitalization)
  Sender: FDA-Public Use
  Company Number: US-ACTELION-A-NJ2013-87829

PATIENT
  Age: 72 Year
  Sex: Female

DRUGS (5)
  1. VELETRI [Suspect]
     Indication: PULMONARY ARTERIAL HYPERTENSION
     Dosage: 30.5 NG/KG, PER MIN
     Route: 042
     Dates: start: 201105, end: 20131107
  2. VELETRI [Suspect]
     Dosage: 31 NG/KG, PER MIN
     Route: 042
     Dates: start: 20110519
  3. TRACLEER [Suspect]
     Indication: PULMONARY ARTERIAL HYPERTENSION
     Dosage: UNK
     Route: 048
     Dates: start: 201008, end: 20131107
  4. SILDENAFIL [Concomitant]
  5. COUMADIN [Concomitant]

REACTIONS (8)
  - Cardiac failure [Fatal]
  - Pneumonia [Not Recovered/Not Resolved]
  - Pulmonary oedema [Not Recovered/Not Resolved]
  - Fluid retention [Not Recovered/Not Resolved]
  - Fluid overload [Not Recovered/Not Resolved]
  - Oedema peripheral [Not Recovered/Not Resolved]
  - Gout [Recovering/Resolving]
  - Distributive shock [Not Recovered/Not Resolved]
